FAERS Safety Report 24232514 (Version 4)
Quarter: 2025Q2

REPORT INFORMATION
  Report Type: Report from Study
  Country: CA (occurrence: CA)
  Receive Date: 20240821
  Receipt Date: 20250617
  Transmission Date: 20250716
  Serious: Yes (Other)
  Sender: TAKEDA
  Company Number: CA-TAKEDA-2024TUS080703

PATIENT
  Sex: Female

DRUGS (3)
  1. VEDOLIZUMAB [Suspect]
     Active Substance: VEDOLIZUMAB
     Indication: Crohn^s disease
  2. VEDOLIZUMAB [Suspect]
     Active Substance: VEDOLIZUMAB
  3. ENTOCORT [Concomitant]
     Active Substance: BUDESONIDE

REACTIONS (16)
  - Crohn^s disease [Unknown]
  - Heart rate increased [Recovering/Resolving]
  - Blood pressure increased [Recovering/Resolving]
  - Chest pain [Recovering/Resolving]
  - Oropharyngeal pain [Recovering/Resolving]
  - Cough [Recovering/Resolving]
  - Nausea [Unknown]
  - Brain fog [Unknown]
  - Frequent bowel movements [Unknown]
  - Diarrhoea [Unknown]
  - Painful respiration [Recovered/Resolved]
  - Respiratory rate decreased [Unknown]
  - Abdominal pain [Unknown]
  - Vomiting [Unknown]
  - Flatulence [Unknown]
  - Headache [Unknown]
